FAERS Safety Report 21419181 (Version 2)
Quarter: 2022Q4

REPORT INFORMATION
  Report Type: Spontaneous
  Country: VN (occurrence: VN)
  Receive Date: 20221006
  Receipt Date: 20221014
  Transmission Date: 20230113
  Serious: Yes (Hospitalization)
  Sender: FDA-Public Use
  Company Number: VN-GE HEALTHCARE-2022CSU007134

PATIENT
  Age: 57 Year
  Sex: Male

DRUGS (2)
  1. OMNIPAQUE [Suspect]
     Active Substance: IOHEXOL
     Indication: Computerised tomogram
     Dosage: 90 ML, SINGLE
     Route: 042
     Dates: start: 20220921, end: 20220921
  2. OMNIPAQUE [Suspect]
     Active Substance: IOHEXOL
     Indication: Pneumonia

REACTIONS (4)
  - Fall [Unknown]
  - Fatigue [Unknown]
  - Peripheral coldness [Unknown]
  - Erythema [Unknown]

NARRATIVE: CASE EVENT DATE: 20220921
